FAERS Safety Report 6188848-7 (Version None)
Quarter: 2009Q2

REPORT INFORMATION
  Report Type: 
  Country: None (occurrence: None)
  Receive Date: 20090513
  Receipt Date: 20090403
  Transmission Date: 20091009
  Serious: Yes (Other)
  Sender: FDA-Public Use
  Company Number: US-JNJFOC-20090502416

PATIENT
  Age: 80 Year
  Sex: Female

DRUGS (7)
  1. FENTANYL TRANSDERMAL SYSTEM [Suspect]
     Route: 062
  2. FENTANYL TRANSDERMAL SYSTEM [Suspect]
     Indication: PAIN
     Route: 062
  3. OXYCODONE HCL [Suspect]
     Dosage: 5-10MG
     Route: 065
  4. OXYCODONE HCL [Suspect]
     Indication: PAIN
     Route: 065
  5. OXYCONTIN [Concomitant]
     Indication: PAIN
  6. GABAPENTIN [Concomitant]
     Indication: PAIN
     Route: 065
  7. IBUPROFEN [Concomitant]
     Indication: PAIN
     Route: 065

REACTIONS (5)
  - ANOREXIA [None]
  - BEDRIDDEN [None]
  - GAIT DISTURBANCE [None]
  - INAPPROPRIATE SCHEDULE OF DRUG ADMINISTRATION [None]
  - PAIN [None]
